FAERS Safety Report 20888460 (Version 2)
Quarter: 2022Q2

REPORT INFORMATION
  Report Type: Other
  Country: DE (occurrence: None)
  Receive Date: 20220529
  Receipt Date: 20220608
  Transmission Date: 20220721
  Serious: No
  Sender: FDA-Public Use
  Company Number: DE-ROCHE-3100939

PATIENT
  Age: 38 Year
  Sex: Female

DRUGS (9)
  1. OCRELIZUMAB [Suspect]
     Active Substance: OCRELIZUMAB
     Indication: Relapsing-remitting multiple sclerosis
     Dosage: V1 BASELINE
     Route: 042
     Dates: start: 20220208
  2. PREDNISOLONE [Concomitant]
     Active Substance: PREDNISOLONE
     Indication: Premedication
     Dosage: V1 BASELINE
     Route: 042
     Dates: start: 20220208, end: 20220208
  3. PREDNISOLONE [Concomitant]
     Active Substance: PREDNISOLONE
     Dosage: V1 BASELINE - 2ND INFUSION
     Route: 042
     Dates: start: 20220222, end: 20220222
  4. EBASTINE [Concomitant]
     Active Substance: EBASTINE
     Indication: Premedication
     Dosage: BEFORE INFUSION
     Route: 048
     Dates: start: 20220207, end: 20220209
  5. EBASTINE [Concomitant]
     Active Substance: EBASTINE
     Dosage: BEFORE INFUSION
     Route: 048
     Dates: start: 20220221, end: 20220223
  6. EFEROX [Concomitant]
     Active Substance: LEVOTHYROXINE SODIUM
     Indication: Hypothyroidism
     Route: 048
     Dates: start: 2019
  7. CHOLECALCIFEROL [Concomitant]
     Active Substance: CHOLECALCIFEROL
     Indication: Prophylaxis
     Route: 048
     Dates: start: 20200923
  8. PREGABALIN [Concomitant]
     Active Substance: PREGABALIN
     Route: 048
     Dates: start: 20211111, end: 20220516
  9. PREDNISOLONE [Concomitant]
     Active Substance: PREDNISOLONE
     Route: 048
     Dates: start: 20220516

REACTIONS (1)
  - COVID-19 [Recovered/Resolved]

NARRATIVE: CASE EVENT DATE: 20220408
